FAERS Safety Report 16180174 (Version 1)
Quarter: 2019Q2

REPORT INFORMATION
  Report Type: Spontaneous
  Country: NL (occurrence: NL)
  Receive Date: 20190410
  Receipt Date: 20190410
  Transmission Date: 20190711
  Serious: Yes (Other)
  Sender: FDA-Public Use
  Company Number: NL-BAUSCH-BL-2019-010313

PATIENT
  Age: 83 Year
  Sex: Female

DRUGS (3)
  1. ENALAPRIL MALEATE SANDOZ [Suspect]
     Active Substance: ENALAPRIL MALEATE
     Dosage: DOSE REDUCED
     Route: 065
  2. DICLOFENAC [Suspect]
     Active Substance: DICLOFENAC
     Indication: PRODUCT USED FOR UNKNOWN INDICATION
     Route: 065
  3. ENALAPRIL MALEATE SANDOZ [Suspect]
     Active Substance: ENALAPRIL MALEATE
     Indication: PRODUCT USED FOR UNKNOWN INDICATION
     Route: 065

REACTIONS (10)
  - Cough [Unknown]
  - Intestinal haemorrhage [Unknown]
  - Fatigue [Unknown]
  - Weight increased [Unknown]
  - Somnolence [Unknown]
  - Peripheral swelling [Unknown]
  - Joint swelling [Unknown]
  - Dizziness [Unknown]
  - Palpitations [Unknown]
  - Vertigo [Unknown]
